FAERS Safety Report 5787872-3 (Version None)
Quarter: 2008Q2

REPORT INFORMATION
  Report Type: 
  Country: None (occurrence: None)
  Receive Date: 20080624
  Receipt Date: 20080624
  Transmission Date: 20081010
  Serious: Yes (Hospitalization)
  Sender: FDA-Public Use
  Company Number: None

PATIENT

DRUGS (2)
  1. LEVAQUIN [Suspect]
     Indication: ARTHRALGIA
     Dosage: 1 TABLET ONCE DAILY 28 DAYS
  2. LEVAQUIN [Suspect]
     Indication: TENDON PAIN
     Dosage: 1 TABLET ONCE DAILY 28 DAYS

REACTIONS (7)
  - ARTHRALGIA [None]
  - GAIT DISTURBANCE [None]
  - JOINT SWELLING [None]
  - MUSCULOSKELETAL STIFFNESS [None]
  - NECK PAIN [None]
  - OEDEMA PERIPHERAL [None]
  - PAIN IN EXTREMITY [None]
